FAERS Safety Report 5223720-8 (Version None)
Quarter: 2007Q1

REPORT INFORMATION
  Report Type: 
  Country: None (occurrence: None)
  Receive Date: 20070126
  Receipt Date: 20070112
  Transmission Date: 20070707
  Serious: Yes (Hospitalization)
  Sender: FDA-Public Use
  Company Number: PHBS2007SE00852

PATIENT
  Age: 91 Year
  Sex: Male

DRUGS (3)
  1. VISUDYNE [Suspect]
     Indication: MACULAR DEGENERATION
     Dosage: 11 MG DAILY IV
     Route: 042
     Dates: start: 20060628, end: 20060628
  2. SPIRONOLAKTON [Concomitant]
  3. AMILORD COMP [Concomitant]

REACTIONS (1)
  - MYOCARDIAL INFARCTION [None]
